FAERS Safety Report 9326098 (Version 1)
Quarter: 2013Q2

REPORT INFORMATION
  Report Type: Spontaneous
  Country: US (occurrence: None)
  Receive Date: 20130603
  Receipt Date: 20130603
  Transmission Date: 20140414
  Serious: Yes (Hospitalization)
  Sender: FDA-Public Use
  Company Number: None

PATIENT
  Age: 29 Year
  Sex: Female
  Weight: 72.58 kg

DRUGS (2)
  1. LAMICTAL [Suspect]
     Indication: MIGRAINE PROPHYLAXIS
     Route: 048
     Dates: start: 20121201, end: 20130531
  2. LAMICTAL [Suspect]
     Indication: CONVULSION PROPHYLAXIS
     Route: 048
     Dates: start: 20121201, end: 20130531

REACTIONS (6)
  - Drug dose omission [None]
  - Dysarthria [None]
  - Drug withdrawal syndrome [None]
  - Road traffic accident [None]
  - Heart rate irregular [None]
  - Paraesthesia [None]
